FAERS Safety Report 5263899-5 (Version None)
Quarter: 2007Q1

REPORT INFORMATION
  Report Type: 
  Country: None (occurrence: None)
  Receive Date: 20070313
  Receipt Date: 20070301
  Transmission Date: 20070707
  Serious: Yes (Other)
  Sender: FDA-Public Use
  Company Number: GB-ELI_LILLY_AND_COMPANY-GB200703000498

PATIENT
  Age: 42 Year
  Sex: Male

DRUGS (3)
  1. XIGRIS [Suspect]
     Dosage: 0.024 MG/KG, EVERY HOUR
     Dates: start: 20070228
  2. ANTIBIOTICS [Concomitant]
  3. NORADRENALINE [Concomitant]

REACTIONS (1)
  - THROMBOCYTOPENIA [None]
